FAERS Safety Report 10010120 (Version 3)
Quarter: 2014Q2

REPORT INFORMATION
  Report Type: Report from Study
  Country: JP (occurrence: JP)
  Receive Date: 20140313
  Receipt Date: 20140423
  Transmission Date: 20141212
  Serious: Yes (Hospitalization)
  Sender: FDA-Public Use
  Company Number: PHHY2014JP029619

PATIENT
  Age: 63 Year
  Sex: Male

DRUGS (1)
  1. FTY 720 [Suspect]
     Indication: MULTIPLE SCLEROSIS RELAPSE
     Dosage: 0.5 MG, QD
     Route: 048
     Dates: start: 20121022, end: 20140304

REACTIONS (5)
  - Multiple sclerosis [Recovered/Resolved]
  - Infection [Recovered/Resolved]
  - Hyperthermia [Recovered/Resolved]
  - Eosinophil count increased [Unknown]
  - Lymphocyte count decreased [Unknown]
